FAERS Safety Report 21779059 (Version 1)
Quarter: 2022Q4

REPORT INFORMATION
  Report Type: Report from Study
  Country: US (occurrence: US)
  Receive Date: 20221226
  Receipt Date: 20221226
  Transmission Date: 20230113
  Serious: No
  Sender: FDA-Public Use
  Company Number: US-ABBVIE-4211940

PATIENT
  Sex: Female

DRUGS (1)
  1. HUMIRA [Suspect]
     Active Substance: ADALIMUMAB
     Indication: Psoriatic arthropathy
     Dosage: CF ,FORM STRENGTH: 40 MG
     Route: 058

REACTIONS (4)
  - Injection site erythema [Unknown]
  - Injection site oedema [Unknown]
  - Injection site warmth [Unknown]
  - Injection site pruritus [Unknown]
